FAERS Safety Report 19816675 (Version 2)
Quarter: 2021Q3

REPORT INFORMATION
  Report Type: Spontaneous
  Country: JP (occurrence: JP)
  Receive Date: 20210909
  Receipt Date: 20210921
  Transmission Date: 20211014
  Serious: Yes (Hospitalization, Other)
  Sender: FDA-Public Use
  Company Number: JP-BRISTOL-MYERS SQUIBB COMPANY-BMS-2021-089052

PATIENT
  Age: 75 Year
  Sex: Male

DRUGS (2)
  1. OPDIVO [Suspect]
     Active Substance: NIVOLUMAB
     Indication: PLEURAL MESOTHELIOMA MALIGNANT
     Dosage: 360 MILLIGRAM, Q3WK
     Route: 041
     Dates: start: 20210622, end: 202108
  2. YERVOY [Suspect]
     Active Substance: IPILIMUMAB
     Indication: PLEURAL MESOTHELIOMA MALIGNANT
     Dosage: 1 MILLIGRAM/KILOGRAM, Q6WK
     Route: 041
     Dates: start: 20210622, end: 202108

REACTIONS (1)
  - Nephrotic syndrome [Not Recovered/Not Resolved]

NARRATIVE: CASE EVENT DATE: 202108
